FAERS Safety Report 8416315-6 (Version None)
Quarter: 2012Q2

REPORT INFORMATION
  Report Type: 
  Country: None (occurrence: None)
  Receive Date: 20120530
  Receipt Date: 20120515
  Transmission Date: 20120825
  Serious: Yes (Other)
  Sender: FDA-Public Use
  Company Number: 2012SP026477

PATIENT
  Age: 61 Year
  Sex: Female
  Weight: 45 kg

DRUGS (12)
  1. PEGASYS [Suspect]
     Indication: HEPATITIS C
     Dosage: 180 MCG;QW;SC
     Route: 058
     Dates: start: 20110718
  2. CARVEDILOL [Concomitant]
  3. AMLODIPINE [Concomitant]
  4. SPIRONOLACTONE [Concomitant]
  5. PANTOPRAZOLE [Concomitant]
  6. LOSARTAN POTASSIUM [Concomitant]
  7. ENALAPRIL MALEATE [Concomitant]
  8. FUROSEMIDE [Concomitant]
  9. RIBAVIRIN [Suspect]
     Indication: HEPATITIS C
     Dosage: 800 MG;QD;PO
     Route: 048
     Dates: start: 20110718
  10. DOXAZOSIN MESYLATE [Concomitant]
  11. PANTOPRAZOLE [Concomitant]
  12. VICTRELIS [Suspect]
     Indication: HEPATITIS C
     Dosage: 800 MG;Q8H;PO
     Route: 048
     Dates: start: 20111124

REACTIONS (14)
  - NAUSEA [None]
  - DIARRHOEA [None]
  - DEPRESSION [None]
  - CEREBRAL HAEMATOMA [None]
  - VOMITING [None]
  - GENITOURINARY TRACT INFECTION [None]
  - PYREXIA [None]
  - VASCULITIS [None]
  - INSOMNIA [None]
  - MALNUTRITION [None]
  - HYPERTENSIVE CRISIS [None]
  - OEDEMA PERIPHERAL [None]
  - ASTHENIA [None]
  - ASCITES [None]
